FAERS Safety Report 5905264-0 (Version None)
Quarter: 2008Q4

REPORT INFORMATION
  Report Type: 
  Country: None (occurrence: None)
  Receive Date: 20081001
  Receipt Date: 20080922
  Transmission Date: 20090506
  Serious: No
  Sender: FDA-Public Use
  Company Number: US-B.I. PHARMACEUTICALS,INC./RIDGEFIELD-2008-BP-14737BP

PATIENT
  Age: 10 Year
  Sex: Female

DRUGS (1)
  1. ZANTAC 75 [Suspect]
     Dosage: 300MG
     Route: 048
     Dates: start: 20080922

REACTIONS (1)
  - ABDOMINAL PAIN UPPER [None]
